FAERS Safety Report 20623559 (Version 1)
Quarter: 2022Q1

REPORT INFORMATION
  Report Type: Spontaneous
  Country: IN (occurrence: IN)
  Receive Date: 20220322
  Receipt Date: 20220322
  Transmission Date: 20220424
  Serious: Yes (Death)
  Sender: FDA-Public Use
  Company Number: IN-PFIZER INC-2021154479

PATIENT
  Age: 58 Year
  Sex: Female

DRUGS (3)
  1. CRIZOTINIB [Suspect]
     Active Substance: CRIZOTINIB
     Indication: ALK gene rearrangement positive
     Dosage: 250 MG, 2X/DAY
     Route: 048
     Dates: start: 20210206
  2. ZOLEDRONIC ACID [Concomitant]
     Active Substance: ZOLEDRONIC ACID
     Dosage: 4 MG
     Route: 042
  3. ZOLEDRONIC ACID [Concomitant]
     Active Substance: ZOLEDRONIC ACID
     Dosage: 4 MG, CYCLIC(EVERY 3 MONTHLY)
     Route: 042
     Dates: start: 20210330

REACTIONS (1)
  - Death [Fatal]

NARRATIVE: CASE EVENT DATE: 20220221
